FAERS Safety Report 17920352 (Version 2)
Quarter: 2020Q3

REPORT INFORMATION
  Report Type: Report from Study
  Country: FR (occurrence: FR)
  Receive Date: 20200620
  Receipt Date: 20200710
  Transmission Date: 20201103
  Serious: Yes (Hospitalization, Other)
  Sender: FDA-Public Use
  Company Number: NVSC2019FR085742

PATIENT
  Age: 31 Year
  Sex: Female
  Weight: 70 kg

DRUGS (11)
  1. TYSABRI [Suspect]
     Active Substance: NATALIZUMAB
     Indication: MULTIPLE SCLEROSIS
     Dosage: 300 MG
     Route: 042
     Dates: start: 20160307, end: 20190405
  2. TYSABRI [Suspect]
     Active Substance: NATALIZUMAB
     Dosage: 300 MG (EVERY 4 WEEKS)
     Route: 042
     Dates: start: 20150629, end: 20150928
  3. ZOPICLONE [Concomitant]
     Active Substance: ZOPICLONE
     Dosage: 3.75 MG, QD
     Route: 048
     Dates: start: 20130322, end: 20151215
  4. COPAXONE [Concomitant]
     Active Substance: GLATIRAMER ACETATE
     Indication: MULTIPLE SCLEROSIS
     Dosage: 20 MG, QD
     Route: 058
     Dates: start: 20150929, end: 20160125
  5. GILENYA [Suspect]
     Active Substance: FINGOLIMOD HYDROCHLORIDE
     Indication: MULTIPLE SCLEROSIS
     Dosage: 0.5 MG, QD
     Route: 048
     Dates: start: 20121004, end: 20150528
  6. ZOPICLONE [Concomitant]
     Active Substance: ZOPICLONE
     Indication: SLEEP DISORDER
     Dosage: 0.5 DF
     Route: 048
     Dates: start: 2012
  7. PENTASA [Concomitant]
     Active Substance: MESALAMINE
     Indication: CROHN^S DISEASE
     Dosage: 2 G, QD
     Route: 048
     Dates: start: 2003
  8. NEURONTIN [Concomitant]
     Active Substance: GABAPENTIN
     Indication: PAIN
     Dosage: 700 MG, BID
     Route: 048
     Dates: start: 20150928
  9. ZOLOFT [Concomitant]
     Active Substance: SERTRALINE HYDROCHLORIDE
     Indication: ANXIETY
     Dosage: UNK
     Route: 048
     Dates: start: 20151019, end: 20160126
  10. GILENYA [Suspect]
     Active Substance: FINGOLIMOD HYDROCHLORIDE
     Dosage: 0.5 MG, QD
     Route: 048
     Dates: start: 20121005, end: 20150520
  11. NEURONTIN [Concomitant]
     Active Substance: GABAPENTIN
     Indication: MULTIPLE SCLEROSIS
     Dosage: 1200 MG
     Route: 048
     Dates: start: 20150928

REACTIONS (6)
  - Placental disorder [Unknown]
  - Oedema peripheral [Recovered/Resolved]
  - Maternal exposure before pregnancy [Unknown]
  - Face oedema [Recovered/Resolved]
  - Headache [Recovered/Resolved]
  - Eclampsia [Recovered/Resolved]

NARRATIVE: CASE EVENT DATE: 20160122
